FAERS Safety Report 4347813-2 (Version None)
Quarter: 2004Q1

REPORT INFORMATION
  Report Type: 
  Country: None (occurrence: None)
  Receive Date: 20040325
  Receipt Date: 20040120
  Transmission Date: 20041129
  Serious: No
  Sender: FDA-Public Use
  Company Number: USA040157102

PATIENT
  Age: 68 Year
  Sex: Female

DRUGS (1)
  1. FORTEO [Suspect]
     Dates: start: 20040116

REACTIONS (4)
  - CHILLS [None]
  - FEELING COLD [None]
  - INJECTION SITE ERYTHEMA [None]
  - PYREXIA [None]
